FAERS Safety Report 4479917-8 (Version None)
Quarter: 2004Q3

REPORT INFORMATION
  Report Type: 
  Country: None (occurrence: None)
  Receive Date: 20040923
  Receipt Date: 20040609
  Transmission Date: 20050211
  Serious: No
  Sender: FDA-Public Use
  Company Number: USA040669716

PATIENT
  Age: 64 Year
  Sex: Female
  Weight: 61 kg

DRUGS (6)
  1. FORTEO [Suspect]
     Indication: OSTEOPOROSIS
     Dosage: 20 UG/1 DAY
     Dates: start: 20040101
  2. FOLIC ACID [Concomitant]
  3. SYNTHROID [Concomitant]
  4. BEXTRA [Concomitant]
  5. CORAL CALCIUM DAILY [Concomitant]
  6. GLUCOSAMINE W/CHONDROITIN [Concomitant]

REACTIONS (11)
  - ARTHRALGIA [None]
  - BLOOD CALCIUM INCREASED [None]
  - BLOOD PRESSURE INCREASED [None]
  - CHEST WALL PAIN [None]
  - DIZZINESS [None]
  - HEART RATE INCREASED [None]
  - HERPES ZOSTER [None]
  - INSOMNIA [None]
  - JOINT RANGE OF MOTION DECREASED [None]
  - TINNITUS [None]
  - VERTIGO [None]
